FAERS Safety Report 6369106-4 (Version None)
Quarter: 2009Q3

REPORT INFORMATION
  Report Type: 
  Country: None (occurrence: None)
  Receive Date: 20090922
  Receipt Date: 20090917
  Transmission Date: 20100115
  Serious: Yes (Death)
  Sender: FDA-Public Use
  Company Number: PHEH2009US10927

PATIENT
  Sex: Male

DRUGS (1)
  1. EXJADE [Suspect]
     Dosage: 1500 UNK, DAILY
     Route: 048
     Dates: start: 20090427, end: 20090902

REACTIONS (2)
  - HEPATIC FAILURE [None]
  - RENAL FAILURE [None]
